FAERS Safety Report 20040634 (Version 1)
Quarter: 2021Q4

REPORT INFORMATION
  Report Type: Spontaneous
  Country: US (occurrence: None)
  Receive Date: 20211108
  Receipt Date: 20211108
  Transmission Date: 20220303
  Serious: Yes (Death, Hospitalization)
  Sender: FDA-Public Use
  Company Number: None

PATIENT
  Sex: Male
  Weight: 64.86 kg

DRUGS (11)
  1. CAPECITABINE [Suspect]
     Active Substance: CAPECITABINE
     Indication: Colon cancer
     Dosage: FREQUENCY : TWICE A DAY;?
     Route: 048
     Dates: start: 20211005, end: 20211024
  2. LISINOPRIL [Concomitant]
     Active Substance: LISINOPRIL
  3. ZOFRAN [Concomitant]
     Active Substance: ONDANSETRON HYDROCHLORIDE
  4. MAGNESIUM OXIDE [Concomitant]
     Active Substance: MAGNESIUM OXIDE
  5. COLACE [Concomitant]
     Active Substance: DOCUSATE SODIUM
  6. ELIQUIS [Concomitant]
     Active Substance: APIXABAN
  7. REGLAN [Concomitant]
     Active Substance: METOCLOPRAMIDE HYDROCHLORIDE
  8. Gas- X [Concomitant]
  9. METOPROLOL [Concomitant]
     Active Substance: METOPROLOL
  10. AMIODARONE [Concomitant]
     Active Substance: AMIODARONE
  11. TYLENOL [Concomitant]
     Active Substance: ACETAMINOPHEN

REACTIONS (1)
  - Adverse reaction [None]
